FAERS Safety Report 6484472-7 (Version None)
Quarter: 2009Q4

REPORT INFORMATION
  Report Type: 
  Country: None (occurrence: None)
  Receive Date: 20091209
  Receipt Date: 20091130
  Transmission Date: 20100525
  Serious: Yes (Hospitalization, Other)
  Sender: FDA-Public Use
  Company Number: PHEH2009US17115

PATIENT
  Sex: Female

DRUGS (10)
  1. EXJADE [Suspect]
     Indication: IRON OVERLOAD
     Dosage: 375MG GT DAILY
     Dates: start: 20090921
  2. EXJADE [Suspect]
     Indication: SICKLE CELL ANAEMIA
  3. DIAZEPAM [Concomitant]
  4. ASPIRIN [Concomitant]
  5. COLACE [Concomitant]
  6. BACLOFEN [Concomitant]
  7. FOLIC ACID [Concomitant]
  8. PENICILLIN V [Concomitant]
  9. SIMETHICONE [Concomitant]
  10. OXCARBAZEPINE [Concomitant]

REACTIONS (2)
  - CEREBRAL REVASCULARISATION SYNANGIOSIS [None]
  - MOYAMOYA DISEASE [None]
